FAERS Safety Report 7197550-4 (Version None)
Quarter: 2010Q4

REPORT INFORMATION
  Report Type: 
  Country: None (occurrence: None)
  Receive Date: 20101227
  Receipt Date: 20101214
  Transmission Date: 20110411
  Serious: Yes (Other)
  Sender: FDA-Public Use
  Company Number: US-SANOFI-AVENTIS-2010SA076893

PATIENT
  Sex: Male

DRUGS (1)
  1. CLOMID [Suspect]
     Dosage: TWO TABLETS PO QD X 10 FOR A TOTAL OF 3 CYCLES
     Route: 048
     Dates: start: 20040301

REACTIONS (3)
  - ASPERGER'S DISORDER [None]
  - ATTENTION DEFICIT/HYPERACTIVITY DISORDER [None]
  - DRUG EXPOSURE DURING PREGNANCY [None]
